FAERS Safety Report 4990298-3 (Version None)
Quarter: 2006Q2

REPORT INFORMATION
  Report Type: 
  Country: None (occurrence: None)
  Receive Date: 20060427
  Receipt Date: 20060417
  Transmission Date: 20061013
  Serious: Yes (Death)
  Sender: FDA-Public Use
  Company Number: 06H-216-0307534-00

PATIENT

DRUGS (1)
  1. VANCOMYCIN HYDROCHLORIDE [Suspect]
     Indication: BACTERIAL INFECTION
     Dosage: 1 GM, 12 HR, INTRAVENOUS/10-28 DAYS
     Route: 042

REACTIONS (2)
  - ANURIA [None]
  - RENAL FAILURE ACUTE [None]
